FAERS Safety Report 6316816-0 (Version None)
Quarter: 2009Q3

REPORT INFORMATION
  Report Type: 
  Country: None (occurrence: None)
  Receive Date: 20090820
  Receipt Date: 20090807
  Transmission Date: 20100115
  Serious: Yes (Other)
  Sender: FDA-Public Use
  Company Number: CA-ROCHE-637714

PATIENT
  Sex: Female
  Weight: 50 kg

DRUGS (1)
  1. ACCUTANE [Suspect]
     Indication: ACNE
     Route: 048
     Dates: start: 20090205, end: 20090610

REACTIONS (2)
  - ANGIOEDEMA [None]
  - URTICARIA [None]
